FAERS Safety Report 17115043 (Version 1)
Quarter: 2019Q4

REPORT INFORMATION
  Report Type: Spontaneous
  Country: US (occurrence: US)
  Receive Date: 20191203
  Receipt Date: 20191203
  Transmission Date: 20200122
  Serious: No
  Sender: FDA-Public Use
  Company Number: None

PATIENT
  Age: 33 Year
  Sex: Female

DRUGS (2)
  1. ENOXAPARIN 40MG/0.4ML [Suspect]
     Active Substance: ENOXAPARIN
     Route: 058
     Dates: start: 20190223
  2. HEPARIN [Suspect]
     Active Substance: HEPARIN SODIUM

REACTIONS (2)
  - Exposure during pregnancy [None]
  - Live birth [None]

NARRATIVE: CASE EVENT DATE: 20191112
